FAERS Safety Report 22048733 (Version 1)
Quarter: 2023Q1

REPORT INFORMATION
  Report Type: Spontaneous
  Country: US (occurrence: None)
  Receive Date: 20230301
  Receipt Date: 20230301
  Transmission Date: 20230418
  Serious: No
  Sender: FDA-Public Use
  Company Number: 2023A042789

PATIENT
  Age: 539 Month
  Sex: Female
  Weight: 72.6 kg

DRUGS (1)
  1. FASENRA [Suspect]
     Active Substance: BENRALIZUMAB
     Indication: Asthma
     Route: 058
     Dates: start: 20221020

REACTIONS (2)
  - Pulmonary congestion [Not Recovered/Not Resolved]
  - Gastrointestinal bacterial infection [Not Recovered/Not Resolved]

NARRATIVE: CASE EVENT DATE: 20230201
